FAERS Safety Report 6971380-8 (Version None)
Quarter: 2010Q3

REPORT INFORMATION
  Report Type: 
  Country: None (occurrence: None)
  Receive Date: 20100908
  Receipt Date: 20100903
  Transmission Date: 20110219
  Serious: Yes (Hospitalization, Other)
  Sender: FDA-Public Use
  Company Number: US-B.I. PHARMACEUTICALS,INC./RIDGEFIELD-2010-BP-08971BP

PATIENT
  Sex: Male

DRUGS (11)
  1. SPIRIVA [Suspect]
     Indication: CHRONIC OBSTRUCTIVE PULMONARY DISEASE
     Dosage: 18 MCG
     Route: 055
     Dates: start: 20080101
  2. SPIRIVA [Suspect]
     Indication: ASTHMA
  3. SPIRIVA [Suspect]
     Indication: BRONCHITIS CHRONIC
  4. COUMADIN [Concomitant]
     Indication: CARDIAC DISORDER
  5. ISOSORBIDE [Concomitant]
     Indication: HYPERTENSION
  6. FUROSEMIDE [Concomitant]
     Indication: HYPERTENSION
  7. PROSCAR [Concomitant]
     Indication: PROSTATIC DISORDER
  8. FOLIC ACID [Concomitant]
     Indication: PROPHYLAXIS
  9. ASPIRIN [Concomitant]
     Indication: PROPHYLAXIS
  10. GLUCOSAMINE CHONDROITIN [Concomitant]
     Indication: PROPHYLAXIS
  11. CRESTOR [Concomitant]
     Indication: BLOOD CHOLESTEROL INCREASED

REACTIONS (3)
  - DYSPHONIA [None]
  - MACULAR DEGENERATION [None]
  - MYOCARDIAL INFARCTION [None]
